FAERS Safety Report 7048441-0 (Version None)
Quarter: 2010Q4

REPORT INFORMATION
  Report Type: 
  Country: None (occurrence: None)
  Receive Date: 20101015
  Receipt Date: 20101005
  Transmission Date: 20110411
  Serious: Yes (Death, Life-Threatening)
  Sender: FDA-Public Use
  Company Number: JP-MERCK-1008USA04183

PATIENT
  Age: 65 Year
  Sex: Female
  Weight: 71 kg

DRUGS (6)
  1. PEPCID [Suspect]
     Indication: GASTRITIS
     Route: 048
     Dates: start: 20090727, end: 20090803
  2. CEFZON [Suspect]
     Indication: POST PROCEDURAL INFECTION
     Route: 048
     Dates: start: 20090727, end: 20090731
  3. ASPIRIN [Concomitant]
     Route: 065
     Dates: start: 20090718, end: 20090807
  4. PLAVIX [Concomitant]
     Route: 065
     Dates: start: 20090718, end: 20090807
  5. SIGMART [Concomitant]
     Route: 065
     Dates: start: 20090722, end: 20090806
  6. VANCOMYCIN [Concomitant]
     Route: 065
     Dates: start: 20090714, end: 20090806

REACTIONS (6)
  - CYTOMEGALOVIRUS ENTEROCOLITIS [None]
  - DISSEMINATED INTRAVASCULAR COAGULATION [None]
  - HISTIOCYTOSIS HAEMATOPHAGIC [None]
  - MULTI-ORGAN FAILURE [None]
  - SEPSIS [None]
  - TOXIC EPIDERMAL NECROLYSIS [None]
